FAERS Safety Report 6581087-7 (Version None)
Quarter: 2010Q1

REPORT INFORMATION
  Report Type: 
  Country: None (occurrence: None)
  Receive Date: 20100215
  Receipt Date: 20100203
  Transmission Date: 20100710
  Serious: Yes (Hospitalization)
  Sender: FDA-Public Use
  Company Number: PHHY2009IE24887

PATIENT
  Sex: Male

DRUGS (1)
  1. CLOZARIL [Suspect]
     Indication: SCHIZOPHRENIA
     Dosage: UNK
     Dates: start: 20090202

REACTIONS (5)
  - ABDOMINAL INFECTION [None]
  - CHOLECYSTECTOMY [None]
  - CHOLELITHIASIS [None]
  - GASTROINTESTINAL OBSTRUCTION [None]
  - JAUNDICE CHOLESTATIC [None]
